FAERS Safety Report 17865002 (Version 1)
Quarter: 2020Q2

REPORT INFORMATION
  Report Type: Spontaneous
  Country: US (occurrence: US)
  Receive Date: 20200605
  Receipt Date: 20200605
  Transmission Date: 20200714
  Serious: Yes (Hospitalization)
  Sender: FDA-Public Use
  Company Number: None

PATIENT
  Age: 64 Year
  Sex: Male
  Weight: 95.4 kg

DRUGS (2)
  1. ROSUVASTATIN. [Suspect]
     Active Substance: ROSUVASTATIN
     Indication: BLOOD CHOLESTEROL INCREASED
     Dates: start: 20170601, end: 20200122
  2. EZETIMIBE. [Suspect]
     Active Substance: EZETIMIBE

REACTIONS (5)
  - Muscular weakness [None]
  - Gastrooesophageal reflux disease [None]
  - Insomnia [None]
  - Interstitial lung disease [None]
  - Dyspnoea [None]

NARRATIVE: CASE EVENT DATE: 20200122
